FAERS Safety Report 12012716 (Version 4)
Quarter: 2016Q2

REPORT INFORMATION
  Report Type: Spontaneous
  Country: BE (occurrence: BE)
  Receive Date: 20160205
  Receipt Date: 20160425
  Transmission Date: 20160815
  Serious: Yes (Other)
  Sender: FDA-Public Use
  Company Number: PHHY2016BE012630

PATIENT
  Age: 26 Year
  Sex: Female

DRUGS (1)
  1. GILENYA [Suspect]
     Active Substance: FINGOLIMOD HYDROCHLORIDE
     Indication: PRODUCT USED FOR UNKNOWN INDICATION
     Dosage: UNK
     Route: 065
     Dates: start: 20131106, end: 20160129

REACTIONS (14)
  - Multiple sclerosis relapse [Unknown]
  - Limb discomfort [Unknown]
  - Urinary retention [Unknown]
  - Hypoaesthesia [Unknown]
  - Lhermitte^s sign [Unknown]
  - Vision blurred [Unknown]
  - Paraesthesia [Not Recovered/Not Resolved]
  - Abdominal pain upper [Unknown]
  - Visual acuity reduced [Unknown]
  - Lymphocyte count decreased [Unknown]
  - Fatigue [Unknown]
  - Carpal tunnel syndrome [Unknown]
  - CD4/CD8 ratio decreased [Unknown]
  - Pruritus [Unknown]

NARRATIVE: CASE EVENT DATE: 20131121
